FAERS Safety Report 5034062-8 (Version None)
Quarter: 2006Q2

REPORT INFORMATION
  Report Type: 
  Country: None (occurrence: None)
  Receive Date: 20060626
  Receipt Date: 20060609
  Transmission Date: 20061013
  Serious: Yes (Hospitalization, Other)
  Sender: FDA-Public Use
  Company Number: US-BRISTOL-MYERS SQUIBB COMPANY-13409099

PATIENT
  Age: 58 Year
  Sex: Male
  Weight: 100 kg

DRUGS (4)
  1. ERBITUX [Suspect]
     Indication: SQUAMOUS CELL CARCINOMA
     Dosage: COURSE 6: REC'D 541 MG. START DATE COURSE 1: 09-MAY-06.
     Dates: start: 20060606, end: 20060606
  2. CISPLATIN [Suspect]
     Indication: SQUAMOUS CELL CARCINOMA
     Dosage: COURSE 6: REC'D 65 MG. COURSE 1 START DATE 09-MAY-06.
     Dates: start: 20060606, end: 20060606
  3. RADIATION THERAPY [Suspect]
     Indication: SQUAMOUS CELL CARCINOMA
  4. DEXAMETHASONE TAB [Suspect]

REACTIONS (6)
  - DEHYDRATION [None]
  - DIARRHOEA [None]
  - FATIGUE [None]
  - INSOMNIA [None]
  - MUCOSAL INFLAMMATION [None]
  - SKIN EXFOLIATION [None]
